FAERS Safety Report 9177547 (Version 1)
Quarter: 2013Q1

REPORT INFORMATION
  Report Type: Spontaneous
  Country: US (occurrence: US)
  Receive Date: 20130321
  Receipt Date: 20130321
  Transmission Date: 20140127
  Serious: Yes (Other)
  Sender: FDA-Public Use
  Company Number: US-BAYER-2013-033114

PATIENT
  Age: 66 Year
  Sex: Female

DRUGS (1)
  1. MIRENA [Suspect]
     Indication: HORMONE REPLACEMENT THERAPY
     Dosage: 20 MCG/24HR, CONT
     Route: 015
     Dates: end: 2012

REACTIONS (6)
  - Genital haemorrhage [None]
  - Vaginal haemorrhage [None]
  - Off label use [None]
  - Back pain [None]
  - Adnexa uteri pain [None]
  - Pelvic pain [None]
